FAERS Safety Report 8505452-3 (Version None)
Quarter: 2012Q3

REPORT INFORMATION
  Report Type: 
  Country: None (occurrence: None)
  Receive Date: 20120712
  Receipt Date: 20120703
  Transmission Date: 20120928
  Serious: No
  Sender: FDA-Public Use
  Company Number: US-009507513-1207USA000864

PATIENT

DRUGS (1)
  1. NASONEX [Suspect]
     Indication: HYPERSENSITIVITY
     Dosage: 50 MICROGRAM, BID

REACTIONS (4)
  - UPPER-AIRWAY COUGH SYNDROME [None]
  - FATIGUE [None]
  - SINUS DISORDER [None]
  - HEADACHE [None]
